FAERS Safety Report 7989713-2 (Version None)
Quarter: 2011Q4

REPORT INFORMATION
  Report Type: 
  Country: None (occurrence: None)
  Receive Date: 20111215
  Receipt Date: 20111209
  Transmission Date: 20120403
  Serious: Yes (Death, Hospitalization)
  Sender: FDA-Public Use
  Company Number: 2007001814

PATIENT
  Age: 86 Year
  Sex: Male
  Weight: 83 kg

DRUGS (4)
  1. DEXAMETHASONE [Suspect]
     Indication: PRODUCT USED FOR UNKNOWN INDICATION
  2. SRS (SRS [Suspect]
     Indication: NON-SMALL CELL LUNG CANCER
     Dosage: 15-24 GY
  3. ERLOTINIB HYDROCHLORIDE [Suspect]
     Indication: NON-SMALL CELL LUNG CANCER
     Dosage: 150 MG, ORAL
     Route: 048
     Dates: start: 20070905, end: 20070916
  4. WBRT (WBRT) [Suspect]
     Indication: NON-SMALL CELL LUNG CANCER
     Dosage: 2.5 GY DAILY 5 DAYS A WEEK X 3 WEEKS
     Dates: start: 20070905

REACTIONS (8)
  - CACHEXIA [None]
  - FAILURE TO THRIVE [None]
  - ASTHENIA [None]
  - APHAGIA [None]
  - HYPERGLYCAEMIA [None]
  - UNRESPONSIVE TO STIMULI [None]
  - DEHYDRATION [None]
  - BLOOD UREA INCREASED [None]
